FAERS Safety Report 6554017-1 (Version None)
Quarter: 2010Q1

REPORT INFORMATION
  Report Type: 
  Country: None (occurrence: None)
  Receive Date: 20100125
  Receipt Date: 20100125
  Transmission Date: 20100710
  Serious: Yes (Disabling)
  Sender: FDA-Public Use
  Company Number: None

PATIENT
  Sex: Female
  Weight: 64.8644 kg

DRUGS (1)
  1. FENTANYL [Suspect]
     Indication: BACK PAIN
     Dosage: DURAGESIC (FENTANYL) 12 MCG/ HR. CHANGE Q 72 HRS. TRANSDERMAL
     Route: 062
     Dates: start: 20090427

REACTIONS (1)
  - FALL [None]
